FAERS Safety Report 22169029 (Version 7)
Quarter: 2023Q4

REPORT INFORMATION
  Report Type: Report from Study
  Country: US (occurrence: US)
  Receive Date: 20230404
  Receipt Date: 20231204
  Transmission Date: 20240110
  Serious: Yes (Other)
  Sender: FDA-Public Use
  Company Number: US-ABBVIE-4712301

PATIENT
  Age: 68 Year
  Sex: Male

DRUGS (4)
  1. HUMIRA [Suspect]
     Active Substance: ADALIMUMAB
     Indication: Rheumatoid arthritis
     Dosage: CITRATE FREE FORM STRENGTH- 40 MILLIGRAM
     Route: 058
     Dates: start: 20220818, end: 202305
  2. HUMIRA [Suspect]
     Active Substance: ADALIMUMAB
     Dosage: LAST ADMIN DATE: 2014 CITRATE FREE FORM STRENGTH- 40 MILLIGRAM
     Route: 058
     Dates: start: 20140626
  3. HUMIRA [Suspect]
     Active Substance: ADALIMUMAB
     Dosage: CITRATE FREE FORM STRENGTH- 40 MILLIGRAM
     Route: 058
     Dates: start: 20140919
  4. HUMIRA [Suspect]
     Active Substance: ADALIMUMAB
     Dosage: CITRATE FREE FORM STRENGTH- 40 MILLIGRAM
     Route: 058
     Dates: start: 202310

REACTIONS (4)
  - Cerebrovascular accident [Unknown]
  - Sinusitis [Unknown]
  - Arterial occlusive disease [Recovering/Resolving]
  - Tonsillar hypertrophy [Recovering/Resolving]

NARRATIVE: CASE EVENT DATE: 20220329
